FAERS Safety Report 20103023 (Version 1)
Quarter: 2021Q4

REPORT INFORMATION
  Report Type: Spontaneous
  Country: US (occurrence: US)
  Receive Date: 20211123
  Receipt Date: 20211123
  Transmission Date: 20220303
  Serious: No
  Sender: FDA-Public Use
  Company Number: US-BIOVITRUM-2021US10914

PATIENT
  Sex: Male

DRUGS (7)
  1. SYNAGIS [Suspect]
     Active Substance: PALIVIZUMAB
     Indication: Antiviral prophylaxis
     Dates: start: 20201210
  2. ALBUTEROL [Concomitant]
     Active Substance: ALBUTEROL
  3. CLARITIN [Concomitant]
     Active Substance: LORATADINE
  4. FAMOTIDINE [Concomitant]
     Active Substance: FAMOTIDINE
  5. FLOVENT [Concomitant]
     Active Substance: FLUTICASONE PROPIONATE
  6. MIRALAX [Concomitant]
     Active Substance: POLYETHYLENE GLYCOL 3350
  7. FLONASE [Concomitant]
     Active Substance: FLUTICASONE PROPIONATE

REACTIONS (3)
  - Erythema [Recovering/Resolving]
  - Urticaria [Unknown]
  - Injection site erythema [Recovering/Resolving]
